FAERS Safety Report 23226489 (Version 1)
Quarter: 2023Q4

REPORT INFORMATION
  Report Type: Report from Study
  Country: IN (occurrence: None)
  Receive Date: 20231124
  Receipt Date: 20231124
  Transmission Date: 20240110
  Serious: Yes (Life-Threatening)
  Sender: FDA-Public Use
  Company Number: 2023A266372

PATIENT
  Age: 778 Month
  Sex: Male

DRUGS (1)
  1. LYNPARZA [Suspect]
     Active Substance: OLAPARIB
     Indication: Adenocarcinoma pancreas
     Route: 048
     Dates: start: 202306

REACTIONS (1)
  - Discomfort [Recovering/Resolving]

NARRATIVE: CASE EVENT DATE: 20231101
